FAERS Safety Report 22629679 (Version 1)
Quarter: 2023Q2

REPORT INFORMATION
  Report Type: Spontaneous
  Country: DK (occurrence: DK)
  Receive Date: 20230622
  Receipt Date: 20230622
  Transmission Date: 20230721
  Serious: Yes (Hospitalization)
  Sender: FDA-Public Use
  Company Number: None

PATIENT
  Age: 27 Year
  Sex: Male
  Weight: 65 kg

DRUGS (1)
  1. OLANZAPINE [Suspect]
     Active Substance: OLANZAPINE
     Indication: Psychotic disorder
     Dosage: 20 MILLIGRAM, QD,STRENGTH: 10 MGDOSAGE WAS I
     Route: 048
     Dates: start: 20210709

REACTIONS (5)
  - Tension [Not Recovered/Not Resolved]
  - Hallucination [Not Recovered/Not Resolved]
  - Restlessness [Not Recovered/Not Resolved]
  - Emotional disorder [Not Recovered/Not Resolved]
  - Weight decreased [Not Recovered/Not Resolved]

NARRATIVE: CASE EVENT DATE: 20230218
